FAERS Safety Report 5921955-X (Version None)
Quarter: 2008Q4

REPORT INFORMATION
  Report Type: 
  Country: None (occurrence: None)
  Receive Date: 20081017
  Receipt Date: 20081009
  Transmission Date: 20090506
  Serious: Yes (Other)
  Sender: FDA-Public Use
  Company Number: US-WATSON-2008-04157

PATIENT
  Age: 58 Year
  Sex: Female

DRUGS (1)
  1. DIETHYLPROPION HYDROCHLORIDE ER [Suspect]
     Indication: WEIGHT DECREASED
     Dosage: 1 TABLET, QAM
     Route: 048
     Dates: start: 20080701

REACTIONS (11)
  - ASTHENIA [None]
  - BODY TEMPERATURE INCREASED [None]
  - BRAIN INJURY [None]
  - DRUG INEFFECTIVE [None]
  - DRY SKIN [None]
  - HYPERHIDROSIS [None]
  - HYPOAESTHESIA [None]
  - LETHARGY [None]
  - SOMNOLENCE [None]
  - VISION BLURRED [None]
  - VOMITING [None]
